FAERS Safety Report 25513810 (Version 1)
Quarter: 2025Q3

REPORT INFORMATION
  Report Type: Spontaneous
  Country: US (occurrence: US)
  Receive Date: 20250703
  Receipt Date: 20250703
  Transmission Date: 20251021
  Serious: No
  Sender: RADIUS PHARM
  Company Number: US-RADIUS HEALTH INC.-2024US009586

PATIENT
  Age: 77 Year
  Sex: Female

DRUGS (6)
  1. TYMLOS [Suspect]
     Active Substance: ABALOPARATIDE
     Indication: Senile osteoporosis
     Route: 058
     Dates: end: 202502
  2. TYMLOS [Suspect]
     Active Substance: ABALOPARATIDE
     Route: 058
     Dates: start: 20241106, end: 202411
  3. TYMLOS [Suspect]
     Active Substance: ABALOPARATIDE
     Route: 058
     Dates: start: 202411
  4. VITAMIN D NOS [Concomitant]
     Active Substance: CHOLECALCIFEROL\ERGOCALCIFEROL
     Indication: Product used for unknown indication
  5. MESTINON [Concomitant]
     Active Substance: PYRIDOSTIGMINE BROMIDE
     Indication: Product used for unknown indication
  6. CALCIUM\VITAMIN D [Concomitant]
     Active Substance: CALCIUM\VITAMIN D
     Indication: Supplementation therapy

REACTIONS (18)
  - Injection site reaction [Unknown]
  - Blood pressure increased [Unknown]
  - Feeling abnormal [Not Recovered/Not Resolved]
  - Tongue disorder [Unknown]
  - Intentional dose omission [Unknown]
  - Respiratory tract infection [Recovered/Resolved]
  - Tooth disorder [Unknown]
  - Fear of injection [Unknown]
  - Coronavirus infection [Unknown]
  - Muscle twitching [Not Recovered/Not Resolved]
  - Dizziness [Not Recovered/Not Resolved]
  - Injection site bruising [Recovering/Resolving]
  - Nausea [Unknown]
  - Gastroenteritis viral [Unknown]
  - Intentional product misuse [Not Recovered/Not Resolved]
  - Illness [Unknown]
  - Insomnia [Not Recovered/Not Resolved]
  - Unevaluable event [Unknown]

NARRATIVE: CASE EVENT DATE: 20241101
